FAERS Safety Report 7450858-7 (Version None)
Quarter: 2011Q2

REPORT INFORMATION
  Report Type: 
  Country: None (occurrence: None)
  Receive Date: 20110428
  Receipt Date: 20110428
  Transmission Date: 20111010
  Serious: Yes (Other)
  Sender: FDA-Public Use
  Company Number: None

PATIENT
  Age: 25 Year
  Sex: Male
  Weight: 108.8633 kg

DRUGS (1)
  1. DEXTROAMPHETAMINE SULFATE [Suspect]

REACTIONS (2)
  - PRODUCT QUALITY ISSUE [None]
  - NO THERAPEUTIC RESPONSE [None]
